FAERS Safety Report 8063110-6 (Version None)
Quarter: 2012Q1

REPORT INFORMATION
  Report Type: 
  Country: None (occurrence: None)
  Receive Date: 20120123
  Receipt Date: 20120112
  Transmission Date: 20120608
  Serious: Yes (Other)
  Sender: FDA-Public Use
  Company Number: US-BAYER-2011-032400

PATIENT
  Age: 37 Year
  Sex: Female
  Weight: 108.84 kg

DRUGS (12)
  1. SILBER BIRCH SEEDS [Concomitant]
     Dosage: UNK
     Dates: start: 20081231
  2. SEROQUEL [Concomitant]
     Indication: PSYCHOTIC DISORDER
     Dosage: UNK
     Dates: start: 20020101
  3. LARIXIN [Concomitant]
     Dosage: UNK
     Dates: start: 20090120
  4. P5P [Concomitant]
     Dosage: UNK
     Dates: start: 20090127
  5. OXYCODONE HCL AND ACETAMINOPHEN [Concomitant]
  6. YASMIN [Suspect]
     Dosage: UNK
     Route: 048
     Dates: start: 20030501, end: 20090101
  7. OXYCONTIN [Concomitant]
  8. IMMUNO PLUS [Concomitant]
     Dosage: UNK
     Dates: start: 20090120
  9. YASMIN [Suspect]
     Dosage: UNK
     Dates: start: 20060801, end: 20080101
  10. LINDEN TREE BUDS, FIG BUDS, SILVER BIRCH BUDS, AND BLACK POLAR BUD [Concomitant]
     Dosage: UNK
     Dates: start: 20081231
  11. SUPER BIO VEG [Concomitant]
     Dosage: UNK
     Dates: start: 20090120
  12. YASMIN [Suspect]
     Dosage: UNK
     Dates: start: 20040601, end: 20050801

REACTIONS (2)
  - DEEP VEIN THROMBOSIS [None]
  - PAIN [None]
